FAERS Safety Report 23568960 (Version 1)
Quarter: 2024Q1

REPORT INFORMATION
  Report Type: Report from Study
  Country: US (occurrence: US)
  Receive Date: 20240227
  Receipt Date: 20240227
  Transmission Date: 20240410
  Serious: No
  Sender: FDA-Public Use
  Company Number: US-ORG100014127-2023000915

PATIENT
  Age: 73 Year
  Sex: Female

DRUGS (9)
  1. METOPIRONE [Suspect]
     Active Substance: METYRAPONE
     Indication: Ectopic ACTH syndrome
     Dosage: 01 CAPSULE BY 03 TIMES DAILY
     Route: 048
     Dates: start: 20230721
  2. METOPIRONE [Suspect]
     Active Substance: METYRAPONE
     Indication: Ectopic ACTH syndrome
     Dosage: 6DAILY
     Route: 048
     Dates: start: 202308
  3. AMLODIPINE [Concomitant]
     Active Substance: AMLODIPINE BESYLATE
     Indication: Product used for unknown indication
  4. Fluocin acet oil 0.01% [Concomitant]
     Indication: Product used for unknown indication
  5. Furosemide 20 mg tab [Concomitant]
     Indication: Product used for unknown indication
  6. Pot chloride 20MEQ ER Tab [Concomitant]
     Indication: Product used for unknown indication
  7. Spironolactone 25 mg tab [Concomitant]
     Indication: Product used for unknown indication
  8. Vitamin D 1.25 mg cap [Concomitant]
     Indication: Product used for unknown indication
  9. Xarelto 20 mg tab [Concomitant]
     Indication: Product used for unknown indication

REACTIONS (4)
  - Fatigue [Not Recovered/Not Resolved]
  - Somnolence [Recovered/Resolved]
  - Dizziness [Recovered/Resolved]
  - Off label use [Unknown]

NARRATIVE: CASE EVENT DATE: 20230105
